FAERS Safety Report 16969670 (Version 1)
Quarter: 2019Q4

REPORT INFORMATION
  Report Type: Spontaneous
  Country: US (occurrence: US)
  Receive Date: 20190911
  Receipt Date: 20190911
  Transmission Date: 20200122
  Serious: Yes (Hospitalization)
  Sender: FDA-Public Use
  Company Number: None

PATIENT
  Sex: Female

DRUGS (15)
  1. LASIX [Concomitant]
     Active Substance: FUROSEMIDE
  2. VITAMIN D3 [Concomitant]
     Active Substance: CHOLECALCIFEROL
  3. XYZAL [Concomitant]
     Active Substance: LEVOCETIRIZINE DIHYDROCHLORIDE
  4. TADALAFIL. [Concomitant]
     Active Substance: TADALAFIL
  5. POT CL MISCRO [Concomitant]
  6. GABAPENTIN. [Concomitant]
     Active Substance: GABAPENTIN
  7. PREDISONE [Concomitant]
     Active Substance: PREDNISONE
  8. ASPIRIN. [Suspect]
     Active Substance: ASPIRIN
  9. PROLIA [Concomitant]
     Active Substance: DENOSUMAB
  10. DIGOXIN. [Concomitant]
     Active Substance: DIGOXIN
  11. OSCAL [Concomitant]
     Active Substance: CALCIUM CARBONATE
  12. SINGULAIR [Concomitant]
     Active Substance: MONTELUKAST SODIUM
  13. LETRO ZOLE [Concomitant]
  14. METOPROL SUC [Concomitant]
  15. ESBRIET [Suspect]
     Active Substance: PIRFENIDONE
     Indication: IDIOPATHIC PULMONARY FIBROSIS
     Route: 048
     Dates: start: 20180520

REACTIONS (2)
  - Product dose omission [None]
  - Respiratory disorder [None]
